FAERS Safety Report 18199532 (Version 1)
Quarter: 2020Q3

REPORT INFORMATION
  Report Type: Spontaneous
  Country: DE (occurrence: DE)
  Receive Date: 20200826
  Receipt Date: 20200826
  Transmission Date: 20201103
  Serious: Yes (Hospitalization)
  Sender: FDA-Public Use
  Company Number: DE-NOVOPROD-747793

PATIENT
  Age: 51 Year
  Sex: Male

DRUGS (1)
  1. NOVORAPID [Suspect]
     Active Substance: INSULIN ASPART
     Indication: TYPE 1 DIABETES MELLITUS
     Dosage: UNK
     Route: 058

REACTIONS (5)
  - Tremor [Recovered/Resolved]
  - Coma [Recovered/Resolved]
  - Malabsorption from injection site [Unknown]
  - Blood glucose increased [Unknown]
  - Dizziness [Recovered/Resolved]
